FAERS Safety Report 9764684 (Version 1)
Quarter: 2013Q4

REPORT INFORMATION
  Report Type: Spontaneous
  Country: US (occurrence: None)
  Receive Date: 20131216
  Receipt Date: 20131216
  Transmission Date: 20140711
  Serious: Yes (Other)
  Sender: FDA-Public Use
  Company Number: None

PATIENT
  Age: 5 Year
  Sex: Male
  Weight: 18.14 kg

DRUGS (1)
  1. ALBUTEROL SULFATE INHALATION SOLUTION 0.083% [Suspect]
     Dosage: 1 VIAL; EVERY 4-6 HOURS; INHALATION BY MOUTH/NOSE
     Route: 055
     Dates: start: 20131007, end: 20131017

REACTIONS (9)
  - Sinusitis [None]
  - Diarrhoea [None]
  - Epistaxis [None]
  - Pyrexia [None]
  - Productive cough [None]
  - Pneumonia [None]
  - No reaction on previous exposure to drug [None]
  - Product quality issue [None]
  - Malaise [None]
